FAERS Safety Report 8443885-4 (Version None)
Quarter: 2012Q2

REPORT INFORMATION
  Report Type: 
  Country: None (occurrence: None)
  Receive Date: 20120618
  Receipt Date: 20120612
  Transmission Date: 20120825
  Serious: Yes (Hospitalization)
  Sender: FDA-Public Use
  Company Number: DE-GENZYME-CAMP-1002201

PATIENT
  Sex: Female
  Weight: 70.93 kg

DRUGS (3)
  1. PEGFILGRASTIM [Suspect]
     Indication: NEUTROPENIA
     Dosage: 6 MG, ONCE
     Route: 058
     Dates: start: 20120123
  2. CAMPATH [Suspect]
     Indication: CHRONIC LYMPHOCYTIC LEUKAEMIA
     Dosage: 30 MG, QD
     Route: 058
     Dates: start: 20120123
  3. DEXAMETHASONE [Suspect]
     Indication: CHRONIC LYMPHOCYTIC LEUKAEMIA
     Dosage: 40 MG, QD
     Route: 048
     Dates: start: 20120123

REACTIONS (1)
  - PROGRESSIVE MULTIFOCAL LEUKOENCEPHALOPATHY [None]
